FAERS Safety Report 9610516 (Version 2)
Quarter: 2013Q4

REPORT INFORMATION
  Report Type: Spontaneous
  Country: US (occurrence: US)
  Receive Date: 20131009
  Receipt Date: 20131024
  Transmission Date: 20140711
  Serious: Yes (Death, Other)
  Sender: FDA-Public Use
  Company Number: US-GILEAD-2013-0085037

PATIENT
  Age: 78 Year
  Sex: Male

DRUGS (3)
  1. LETAIRIS [Suspect]
     Indication: PULMONARY ARTERIAL HYPERTENSION
     Dosage: 5 MG, QD
     Route: 048
     Dates: start: 20130725, end: 20131002
  2. LETAIRIS [Suspect]
     Indication: SLEEP APNOEA SYNDROME
     Dosage: 10 UNK, UNK
     Route: 048
  3. LETAIRIS [Suspect]
     Indication: LEFT VENTRICULAR DYSFUNCTION

REACTIONS (1)
  - Death [Fatal]
